FAERS Safety Report 12703954 (Version 1)
Quarter: 2016Q3

REPORT INFORMATION
  Report Type: Other
  Country: US (occurrence: US)
  Receive Date: 20160831
  Receipt Date: 20160831
  Transmission Date: 20161109
  Serious: Yes (Death)
  Sender: FDA-Public Use
  Company Number: US-TEIKOKU PHARMA USA-TPU2016-00564

PATIENT
  Age: 43 Year
  Sex: Female

DRUGS (4)
  1. DILAUDID [Concomitant]
     Active Substance: HYDROMORPHONE HYDROCHLORIDE
  2. OXYCODONE [Concomitant]
     Active Substance: OXYCODONE
  3. METHADONE [Concomitant]
     Active Substance: METHADONE HYDROCHLORIDE
  4. LIDOCAINE PATCH [Suspect]
     Active Substance: LIDOCAINE
     Indication: CANCER PAIN
     Route: 062

REACTIONS (2)
  - Death [None]
  - Drug ineffective for unapproved indication [Unknown]
